FAERS Safety Report 12853725 (Version 2)
Quarter: 2016Q4

REPORT INFORMATION
  Report Type: Spontaneous
  Country: FR (occurrence: FR)
  Receive Date: 20161017
  Receipt Date: 20161028
  Transmission Date: 20170207
  Serious: Yes (Hospitalization)
  Sender: FDA-Public Use
  Company Number: FR-BIOVITRUM-2016FR0811

PATIENT
  Age: 76 Year
  Sex: Female

DRUGS (10)
  1. KINERET [Suspect]
     Active Substance: ANAKINRA
     Indication: JUVENILE IDIOPATHIC ARTHRITIS
     Route: 058
     Dates: start: 20160627, end: 20160719
  2. PREDNISONE. [Concomitant]
     Active Substance: PREDNISONE
     Dates: start: 201501
  3. PARACETAMOL [Concomitant]
     Active Substance: ACETAMINOPHEN
     Dates: start: 201501
  4. FENOFIBRATE. [Concomitant]
     Active Substance: FENOFIBRATE
     Dates: start: 201501
  5. ZOPICLONE [Concomitant]
     Active Substance: ZOPICLONE
     Dates: start: 201501
  6. COLECALCIFEROL [Concomitant]
     Active Substance: CHOLECALCIFEROL
     Dates: start: 201501
  7. WARFARINE [Concomitant]
     Active Substance: WARFARIN
     Dates: start: 201501
  8. METFORMINE [Concomitant]
     Active Substance: METFORMIN HYDROCHLORIDE
     Dates: start: 201501
  9. DULOXETINE. [Concomitant]
     Active Substance: DULOXETINE
     Dates: start: 201501
  10. ALENDRONIC ACID [Concomitant]
     Active Substance: ALENDRONIC ACID
     Dates: start: 201501

REACTIONS (1)
  - Pancreatitis acute [Recovered/Resolved]

NARRATIVE: CASE EVENT DATE: 20160719
